FAERS Safety Report 6431703-5 (Version None)
Quarter: 2009Q4

REPORT INFORMATION
  Report Type: 
  Country: None (occurrence: None)
  Receive Date: 20091103
  Receipt Date: 20091019
  Transmission Date: 20100525
  Serious: Yes (Hospitalization)
  Sender: FDA-Public Use
  Company Number: 02100-JPN-05-0151

PATIENT
  Age: 68 Year
  Sex: Male
  Weight: 71.5 kg

DRUGS (18)
  1. PLETAL [Suspect]
     Indication: CEREBRAL INFARCTION
     Dosage: 100 MG, BID, ORAL
     Route: 048
     Dates: start: 20041015, end: 20041021
  2. PAXIL [Suspect]
     Indication: DEPRESSION
     Dosage: 20 MG, QD, ORAL
     Route: 048
     Dates: start: 20040525
  3. ZOLPIDEM TARTRATE [Concomitant]
  4. GLYCERIN (GLYCEROL) SUPPOSITORY [Concomitant]
  5. PURSENNID (SENNOSIDE) TABLET [Concomitant]
  6. AMLODIN (AMLODIPINE BESILATE) TABLET [Concomitant]
  7. DESYREL [Concomitant]
  8. BLOSTAR (FAMOTIDINE) TABLET [Concomitant]
  9. CONSTAN (ALPRAZOLAM) TABLET [Concomitant]
  10. LIVALO (PITAVASTATIN CALCIUM) TABLET [Concomitant]
  11. SOL-MELCORT (METHYLPREDNISOLONE SODIUM SUCCINATE) INJECTION [Concomitant]
  12. VOLTAREN [Concomitant]
  13. TIZANIDINE HCL [Concomitant]
  14. VANCOMIN (MECOBALAMIN) TABLET [Concomitant]
  15. PYRINAZIN (PARACETAMOL) POWDER FOR ORAL SOLUTION [Concomitant]
  16. CATLEP (INDOMETACIN) [Concomitant]
  17. PANTOSIN (PANTETHINE) POWDER FOR ORAL SOLUTION [Concomitant]
  18. HEAVY MAGNESIUM OXIDE (MAGNESIUM OXIDE) [Concomitant]

REACTIONS (27)
  - BLOOD CHLORIDE DECREASED [None]
  - BLOOD PRESSURE INCREASED [None]
  - BLOOD SODIUM DECREASED [None]
  - BRONCHITIS [None]
  - CERVICAL VERTEBRAL FRACTURE [None]
  - CONDITION AGGRAVATED [None]
  - DIABETES MELLITUS [None]
  - DYSPNOEA [None]
  - ELECTROLYTE IMBALANCE [None]
  - EPILEPSY [None]
  - FALL [None]
  - FLUID RETENTION [None]
  - GAMMA-GLUTAMYLTRANSFERASE INCREASED [None]
  - GLUCOSE URINE PRESENT [None]
  - HEAD INJURY [None]
  - HEADACHE [None]
  - HYPOAESTHESIA [None]
  - MUSCLE SPASMS [None]
  - MUSCULAR WEAKNESS [None]
  - MUSCULOSKELETAL PAIN [None]
  - NASOPHARYNGITIS [None]
  - NECK PAIN [None]
  - OROPHARYNGEAL PAIN [None]
  - PNEUMONIA [None]
  - SPINAL CORD INJURY [None]
  - SPINAL LIGAMENT OSSIFICATION [None]
  - TACHYCARDIA [None]
